FAERS Safety Report 6997629-3 (Version None)
Quarter: 2010Q3

REPORT INFORMATION
  Report Type: 
  Country: None (occurrence: None)
  Receive Date: 20100918
  Receipt Date: 20091116
  Transmission Date: 20110219
  Serious: No
  Sender: FDA-Public Use
  Company Number: US-WYE-H12197309

PATIENT
  Sex: Male
  Weight: 72.64 kg

DRUGS (2)
  1. PRISTIQ [Suspect]
     Indication: DEPRESSION
     Route: 048
     Dates: start: 20090701
  2. LIPITOR [Concomitant]

REACTIONS (3)
  - CHAPPED LIPS [None]
  - DRY MOUTH [None]
  - DYSGEUSIA [None]
